FAERS Safety Report 8794272 (Version 1)
Quarter: 2012Q4

REPORT INFORMATION
  Report Type: 
  Country: US (occurrence: US)
  Receive Date: 20120918
  Receipt Date: 20120918
  Transmission Date: 20130627
  Serious: No
  Sender: FDA-Public Use
  Company Number: US-009507513-1208USA005898

PATIENT

DRUGS (3)
  1. VICTRELIS [Suspect]
     Dosage: 4 DF, tid
     Route: 048
     Dates: start: 20120726
  2. PEGINTRON [Suspect]
     Dosage: 120 Microgram, qw, Pegintron Redipen
     Route: 058
     Dates: start: 20060711
  3. RIBAPAK [Concomitant]
     Dosage: UNK

REACTIONS (3)
  - Weight decreased [Not Recovered/Not Resolved]
  - Vomiting [Not Recovered/Not Resolved]
  - Nausea [Not Recovered/Not Resolved]
